FAERS Safety Report 12737573 (Version 1)
Quarter: 2016Q3

REPORT INFORMATION
  Report Type: Spontaneous
  Country: JP (occurrence: JP)
  Receive Date: 20160913
  Receipt Date: 20160913
  Transmission Date: 20161109
  Serious: Yes (Disabling, Other)
  Sender: FDA-Public Use
  Company Number: JP-ELI_LILLY_AND_COMPANY-JP201609001039

PATIENT
  Age: 50 Year
  Sex: Male

DRUGS (75)
  1. ZYPREXA [Suspect]
     Active Substance: OLANZAPINE
     Dosage: 5 MG, QD
     Route: 048
     Dates: start: 20021025, end: 20031204
  2. ZYPREXA [Suspect]
     Active Substance: OLANZAPINE
     Dosage: 5 MG, QD
     Route: 048
     Dates: start: 20060905, end: 20061011
  3. ABILIFY [Suspect]
     Active Substance: ARIPIPRAZOLE
     Indication: SCHIZOPHRENIA
     Dosage: 12 ML, QD
     Route: 048
     Dates: start: 20091208, end: 20091217
  4. ABILIFY [Suspect]
     Active Substance: ARIPIPRAZOLE
     Dosage: 3 ML, QD
     Route: 048
     Dates: start: 20120525, end: 20130103
  5. ABILIFY [Suspect]
     Active Substance: ARIPIPRAZOLE
     Dosage: 6 ML, QD
     Route: 048
     Dates: start: 20140822, end: 20140918
  6. ABILIFY [Suspect]
     Active Substance: ARIPIPRAZOLE
     Dosage: 6 ML, QD
     Route: 048
     Dates: start: 20141017, end: 20150407
  7. SEROQUEL [Suspect]
     Active Substance: QUETIAPINE FUMARATE
     Dosage: 200 MG, QD
     Route: 048
     Dates: start: 20140822, end: 20140918
  8. RISPERDAL [Suspect]
     Active Substance: RISPERIDONE
     Indication: SCHIZOPHRENIA
     Dosage: 1 ML, QD, AS NEEDED
     Route: 048
     Dates: start: 20081208, end: 20091207
  9. TASMOLIN                           /00079502/ [Suspect]
     Active Substance: BIPERIDEN HYDROCHLORIDE
     Dosage: 1 MG, BID
     Route: 048
     Dates: start: 20021206, end: 20021219
  10. TASMOLIN                           /00079502/ [Suspect]
     Active Substance: BIPERIDEN HYDROCHLORIDE
     Dosage: 1 MG, QD
     Route: 048
     Dates: start: 20100730, end: 20100923
  11. RIVOTRIL [Suspect]
     Active Substance: CLONAZEPAM
     Indication: DYSKINESIA
     Dosage: 0.5 MG, BID
     Route: 048
     Dates: start: 20121109, end: 20130523
  12. AKIRIDEN [Suspect]
     Active Substance: BIPERIDEN
     Indication: DYSKINESIA
     Dosage: 1 MG, QD
     Route: 048
     Dates: start: 20101119, end: 20110113
  13. GOODMIN [Suspect]
     Active Substance: BROTIZOLAM
     Dosage: 0.25 MG, QD, AS NEEDED
     Route: 048
     Dates: start: 20050521, end: 20050814
  14. FLUNITRAZEPAM [Suspect]
     Active Substance: FLUNITRAZEPAM
     Indication: SLEEP DISORDER THERAPY
     Dosage: 1 MG, QD
     Route: 048
     Dates: start: 20130201, end: 20130328
  15. ZYPREXA [Suspect]
     Active Substance: OLANZAPINE
     Dosage: 10 MG, QD
     Route: 048
     Dates: start: 20020913, end: 20021024
  16. ABILIFY [Suspect]
     Active Substance: ARIPIPRAZOLE
     Dosage: 3 ML, QD
     Route: 048
     Dates: start: 20101217, end: 20110217
  17. ABILIFY [Suspect]
     Active Substance: ARIPIPRAZOLE
     Dosage: 6 ML, QD
     Route: 048
     Dates: start: 20110513, end: 20110915
  18. ABILIFY [Suspect]
     Active Substance: ARIPIPRAZOLE
     Dosage: 3 ML, QD
     Route: 048
     Dates: start: 20110916, end: 20111208
  19. SULPIRIDE [Suspect]
     Active Substance: SULPIRIDE
     Dosage: 200 MG, QD
     Route: 048
     Dates: start: 20140110, end: 20140206
  20. LINTON /00008702/ [Suspect]
     Active Substance: BUTYLSCOPOLAMINE BROMIDE
     Indication: SCHIZOPHRENIA
     Dosage: 0.75 MG, QD
     Route: 048
     Dates: start: 20120330, end: 20120524
  21. TASMOLIN /00079502/ [Suspect]
     Active Substance: BIPERIDEN HYDROCHLORIDE
     Indication: PARKINSONISM
     Dosage: 1 MG, BID
     Route: 048
     Dates: start: 20020802, end: 20020829
  22. ARTANE [Suspect]
     Active Substance: TRIHEXYPHENIDYL HYDROCHLORIDE
     Dosage: 2 MG, QD
     Route: 048
     Dates: start: 20140919, end: 20141113
  23. ARTANE [Suspect]
     Active Substance: TRIHEXYPHENIDYL HYDROCHLORIDE
     Dosage: 2 MG, QD
     Route: 048
     Dates: start: 20150109, end: 20150305
  24. GOODMIN [Suspect]
     Active Substance: BROTIZOLAM
     Dosage: 0.25 MG, QD, AS NEEDED
     Route: 048
     Dates: start: 20110708, end: 20110818
  25. BENZALIN                           /00036201/ [Suspect]
     Active Substance: NITRAZEPAM
     Dosage: 5 MG, QD
     Route: 048
     Dates: start: 20131108, end: 20150522
  26. DEPAS [Suspect]
     Active Substance: ETIZOLAM
     Dosage: 1 MG, QD
     Route: 048
     Dates: start: 20120914, end: 20121108
  27. ZYPREXA [Suspect]
     Active Substance: OLANZAPINE
     Dosage: 15 MG, QD
     Route: 048
     Dates: start: 20020816, end: 20020912
  28. ABILIFY [Suspect]
     Active Substance: ARIPIPRAZOLE
     Dosage: 6 ML, QD
     Route: 048
     Dates: start: 20130524, end: 20130718
  29. ABILIFY [Suspect]
     Active Substance: ARIPIPRAZOLE
     Dosage: 9 ML, QD
     Route: 048
     Dates: start: 20130719, end: 20140109
  30. SEROQUEL [Suspect]
     Active Substance: QUETIAPINE FUMARATE
     Dosage: 100 MG, QD
     Route: 048
     Dates: start: 20141017, end: 20150522
  31. AKINETON [Suspect]
     Active Substance: BIPERIDEN HYDROCHLORIDE
     Indication: DYSKINESIA
     Dosage: 2 MG, QD
     Route: 048
     Dates: start: 20110114, end: 20120524
  32. AKINETON [Suspect]
     Active Substance: BIPERIDEN HYDROCHLORIDE
     Dosage: 1 MG, TID
     Route: 048
     Dates: start: 20120525, end: 20121108
  33. RIVOTRIL [Suspect]
     Active Substance: CLONAZEPAM
     Dosage: 1 MG, QD
     Route: 048
     Dates: start: 20140725, end: 20141113
  34. GOODMIN [Suspect]
     Active Substance: BROTIZOLAM
     Dosage: 0.25 MG, QD
     Route: 048
     Dates: start: 20110819, end: 20111013
  35. ZYPREXA [Suspect]
     Active Substance: OLANZAPINE
     Dosage: 5 MG, QD
     Route: 048
     Dates: start: 20070130, end: 20070501
  36. ZYPREXA [Suspect]
     Active Substance: OLANZAPINE
     Dosage: 10 MG, QD, AS NEEDED
     Route: 048
     Dates: start: 20080918, end: 20081018
  37. ABILIFY [Suspect]
     Active Substance: ARIPIPRAZOLE
     Dosage: 6 ML, QD
     Route: 048
     Dates: start: 20130104, end: 20130131
  38. ABILIFY [Suspect]
     Active Substance: ARIPIPRAZOLE
     Dosage: 6 ML, QD
     Route: 048
     Dates: start: 20140110, end: 20140206
  39. ABILIFY [Suspect]
     Active Substance: ARIPIPRAZOLE
     Dosage: 3 ML, QD
     Route: 048
     Dates: start: 20150408, end: 20150421
  40. SEROQUEL [Suspect]
     Active Substance: QUETIAPINE FUMARATE
     Indication: SCHIZOPHRENIA
     Dosage: 50 MG, QD
     Route: 048
     Dates: start: 20060313, end: 20060710
  41. SULPIRIDE [Suspect]
     Active Substance: SULPIRIDE
     Indication: SCHIZOPHRENIA
     Dosage: 50 MG, QD
     Route: 048
     Dates: start: 20061225, end: 20070129
  42. RISPERDAL [Suspect]
     Active Substance: RISPERIDONE
     Dosage: 3 ML, QD, AS NEEDED
     Route: 048
     Dates: start: 20090219, end: 20091207
  43. DEPAS [Suspect]
     Active Substance: ETIZOLAM
     Indication: SLEEP DISORDER THERAPY
     Dosage: 0.5 MG, QD
     Route: 048
     Dates: start: 20120817, end: 20120913
  44. ZYPREXA [Suspect]
     Active Substance: OLANZAPINE
     Dosage: 5 MG, QD
     Route: 048
     Dates: start: 20061116, end: 20061215
  45. ABILIFY [Suspect]
     Active Substance: ARIPIPRAZOLE
     Dosage: 6 ML, QD
     Route: 048
     Dates: start: 20110218, end: 20110414
  46. ABILIFY [Suspect]
     Active Substance: ARIPIPRAZOLE
     Dosage: 3 ML, QD
     Route: 048
     Dates: start: 20120502, end: 20120529
  47. ABILIFY [Suspect]
     Active Substance: ARIPIPRAZOLE
     Dosage: 12 ML, QD
     Route: 048
     Dates: start: 20140919, end: 20141016
  48. TASMOLIN                           /00079502/ [Suspect]
     Active Substance: BIPERIDEN HYDROCHLORIDE
     Dosage: 2 MG, QD
     Route: 048
     Dates: start: 20100924, end: 20101118
  49. AKIRIDEN [Suspect]
     Active Substance: BIPERIDEN
     Dosage: 1 MG, BID
     Route: 048
     Dates: start: 20150408, end: 20150421
  50. GOODMIN [Suspect]
     Active Substance: BROTIZOLAM
     Dosage: 0.25 MG, QD
     Route: 048
     Dates: start: 20130524, end: 20131107
  51. DEPAS [Suspect]
     Active Substance: ETIZOLAM
     Dosage: 0.5 MG, QD
     Route: 048
     Dates: start: 20121207, end: 20130103
  52. ZYPREXA [Suspect]
     Active Substance: OLANZAPINE
     Dosage: 10 MG, QD
     Route: 048
     Dates: start: 20060810, end: 20060904
  53. ZYPREXA [Suspect]
     Active Substance: OLANZAPINE
     Dosage: 10 MG, QD
     Route: 048
     Dates: start: 20070502, end: 20081217
  54. ABILIFY [Suspect]
     Active Substance: ARIPIPRAZOLE
     Indication: SCHIZOPHRENIA
     Dosage: 3 MG, QD
     Route: 048
     Dates: start: 20061012, end: 20061115
  55. ARTANE [Suspect]
     Active Substance: TRIHEXYPHENIDYL HYDROCHLORIDE
     Dosage: 2 MG, QD
     Route: 048
     Dates: start: 20140110, end: 20140206
  56. ARTANE [Suspect]
     Active Substance: TRIHEXYPHENIDYL HYDROCHLORIDE
     Dosage: 2 MG, BID
     Route: 048
     Dates: start: 20150306, end: 20150407
  57. GOODMIN [Suspect]
     Active Substance: BROTIZOLAM
     Indication: SLEEP DISORDER THERAPY
     Dosage: 0.25 MG, QD
     Route: 048
     Dates: start: 20020802, end: 20020912
  58. GOODMIN [Suspect]
     Active Substance: BROTIZOLAM
     Dosage: 0.25 MG, QD
     Route: 048
     Dates: start: 20111111, end: 20130328
  59. ZYPREXA [Suspect]
     Active Substance: OLANZAPINE
     Indication: SCHIZOPHRENIA
     Dosage: 20 MG, QD
     Route: 048
     Dates: start: 20020802, end: 20020815
  60. ZYPREXA [Suspect]
     Active Substance: OLANZAPINE
     Indication: SCHIZOPHRENIA
     Dosage: 10 MG, QD
     Route: 048
     Dates: start: 20060711, end: 20060809
  61. ABILIFY [Suspect]
     Active Substance: ARIPIPRAZOLE
     Dosage: 3 MG, QD
     Route: 048
     Dates: start: 20111209, end: 20120202
  62. ABILIFY [Suspect]
     Active Substance: ARIPIPRAZOLE
     Dosage: 6 ML, QD
     Route: 048
     Dates: start: 20100604, end: 20101216
  63. ABILIFY [Suspect]
     Active Substance: ARIPIPRAZOLE
     Dosage: 3 ML, QD
     Route: 048
     Dates: start: 20130201, end: 20130523
  64. ABILIFY [Suspect]
     Active Substance: ARIPIPRAZOLE
     Dosage: 12 ML, QD
     Route: 048
     Dates: start: 20140502, end: 20140821
  65. TASMOLIN                           /00079502/ [Suspect]
     Active Substance: BIPERIDEN HYDROCHLORIDE
     Dosage: 1 MG, QD
     Route: 048
     Dates: start: 20021220, end: 20030123
  66. ARTANE [Suspect]
     Active Substance: TRIHEXYPHENIDYL HYDROCHLORIDE
     Indication: DYSKINESIA
     Dosage: 2 MG, QD
     Route: 048
     Dates: start: 20101119, end: 20110113
  67. ARTANE [Suspect]
     Active Substance: TRIHEXYPHENIDYL HYDROCHLORIDE
     Dosage: 2 MG, BID
     Route: 048
     Dates: start: 20141114, end: 20150108
  68. BENZALIN                           /00036201/ [Suspect]
     Active Substance: NITRAZEPAM
     Indication: SLEEP DISORDER THERAPY
     Dosage: 5 MG, QD
     Route: 048
     Dates: start: 20111014, end: 20111110
  69. FLUNITRAZEPAM [Suspect]
     Active Substance: FLUNITRAZEPAM
     Dosage: 2 MG, QD
     Route: 048
     Dates: start: 20130329, end: 20130523
  70. AMOBAN [Suspect]
     Active Substance: ZOPICLONE
     Indication: SLEEP DISORDER THERAPY
     Dosage: 10 MG, QD
     Route: 048
     Dates: start: 20150422, end: 20150522
  71. ZYPREXA [Suspect]
     Active Substance: OLANZAPINE
     Dosage: 10 MG, QD
     Route: 048
     Dates: start: 20110415, end: 20110512
  72. ABILIFY [Suspect]
     Active Substance: ARIPIPRAZOLE
     Dosage: 9 ML, QD
     Route: 048
     Dates: start: 20140207, end: 20140501
  73. LULLAN [Suspect]
     Active Substance: PEROSPIRONE HYDROCHLORIDE
     Indication: SCHIZOPHRENIA
     Dosage: 8 MG, QD
     Route: 048
     Dates: start: 20031205, end: 20060512
  74. SEROQUEL [Suspect]
     Active Substance: QUETIAPINE FUMARATE
     Dosage: 25 MG, BID
     Route: 048
     Dates: start: 20120203, end: 20120301
  75. TASMOLIN                           /00079502/ [Suspect]
     Active Substance: BIPERIDEN HYDROCHLORIDE
     Indication: DYSKINESIA
     Dosage: 1 MG, TID
     Route: 048
     Dates: start: 20020830, end: 20021205

REACTIONS (8)
  - Mastication disorder [Unknown]
  - Motor dysfunction [Unknown]
  - Dysphagia [Unknown]
  - Language disorder [Unknown]
  - Dystonia [Unknown]
  - Insomnia [Unknown]
  - Tardive dyskinesia [Unknown]
  - Dyskinesia [Unknown]
